FAERS Safety Report 12280240 (Version 1)
Quarter: 2016Q2

REPORT INFORMATION
  Report Type: Spontaneous
  Country: US (occurrence: US)
  Receive Date: 20160419
  Receipt Date: 20160419
  Transmission Date: 20160815
  Serious: No
  Sender: FDA-Public Use
  Company Number: US-ASTRAZENECA-2016SE40654

PATIENT
  Age: 81 Year
  Sex: Female
  Weight: 90 kg

DRUGS (18)
  1. KRILL OIL [Concomitant]
     Active Substance: DIETARY SUPPLEMENT
     Indication: BLOOD CHOLESTEROL INCREASED
  2. SYSTANE (HYPROMELLOSE 2910 (4000 MPA.S)) [Concomitant]
     Active Substance: HYPROMELLOSE 2910 (4000 MPA.S)
     Indication: DRY EYE
     Dosage: ONE OR TWO DROPS WHENEVER YOUR EYES ARE DRY, AS NEEDED
  3. CENTURY(MINERALS NOS, VITAMINS NOS) [Interacting]
     Active Substance: MINERALS\VITAMINS
     Indication: VITAMIN SUPPLEMENTATION
     Dosage: 1 DF EVERY DAY, NON AZ PRODUCT
     Route: 048
  4. COQ10 [Concomitant]
     Active Substance: UBIDECARENONE
     Indication: UBIQUINONE DECREASED
     Dosage: 50 MG, 1X/DAY IN THE MORNING STARTED ABOUT 10 YEARS AGO^
  5. COMBIGAN [Concomitant]
     Active Substance: BRIMONIDINE TARTRATE\TIMOLOL MALEATE
     Indication: GLAUCOMA
     Dosage: 1 DF, TWO TIMES A DAY STARTED TAKING THE PRODUCT ABOUT TEN YEARS AGO
  6. COSAMIN DS [Concomitant]
     Indication: ARTHRITIS
     Dosage: 1 DF, TWO TIMES A DAY/STARTED TAKING THIS PRODUCT TEN YEARS AGO
  7. IBUPROFEN. [Concomitant]
     Active Substance: IBUPROFEN
     Indication: ARTHRITIS
     Dosage: TWO 200MG TABLETS, IN THE AFTERNOON/STARTED TAKING THIS PRODUCT ABOUT 12 YEARS AGO.
  8. ACIDOPHILUS PROBIOTIC [Concomitant]
     Indication: PROPHYLAXIS
     Dosage: 1 DF, EVERY DAY IN THE MORNING WITH MY BREAKFAST
  9. ACIDOPHILUS PROBIOTIC [Concomitant]
     Indication: PROPHYLAXIS
  10. SAME [Concomitant]
     Indication: AFFECTIVE DISORDER
  11. LISINOPRIL. [Concomitant]
     Active Substance: LISINOPRIL
     Dosage: 10 MG, EVERY DAY BEFORE BEDTIME
  12. TYLENOL ARTHRITIS PAIN [Concomitant]
     Active Substance: ACETAMINOPHEN
     Indication: ARTHRITIS
     Dosage: 400 MG, TWO IN THE MORNING/STARTED TAKING THIS PRODUCT ABOUT 12 YEARS AGO.
  13. ALEVE [Concomitant]
     Active Substance: NAPROXEN SODIUM
     Indication: ARTHRITIS
     Dosage: 220 MG, EVERY DAY BEFORE BEDTIME/STARTED TAKING THIS PRODUCT ABOUT 12 YEARS AGO.
  14. VITAMIN D [Concomitant]
     Active Substance: CHOLECALCIFEROL
     Indication: VITAMIN SUPPLEMENTATION
     Dosage: 1000 IU, 1X/DAY
  15. NEXIUM 24HR [Suspect]
     Active Substance: ESOMEPRAZOLE MAGNESIUM
     Indication: DYSPEPSIA
     Dosage: 22.3 MG, EVERY DAY IN THE MORNING
     Route: 048
     Dates: start: 201603, end: 201603
  16. OXYBUTYNIN [Concomitant]
     Active Substance: OXYBUTYNIN
     Indication: INCONTINENCE
     Dosage: 15 MG,EVERY DAY IN THE MORNING
     Route: 048
  17. LATANOPROST. [Concomitant]
     Active Substance: LATANOPROST
     Indication: GLAUCOMA
     Dosage: 0.005 %, ONE DROP IN ONE EYE AT NIGHT
     Dates: start: 2015
  18. SAME [Concomitant]
     Indication: ARTHRALGIA

REACTIONS (3)
  - Hypoaesthesia [Recovering/Resolving]
  - Drug interaction [Unknown]
  - Paraesthesia [Recovering/Resolving]

NARRATIVE: CASE EVENT DATE: 201603
